FAERS Safety Report 8393149-2 (Version None)
Quarter: 2012Q2

REPORT INFORMATION
  Report Type: 
  Country: None (occurrence: None)
  Receive Date: 20120529
  Receipt Date: 20120423
  Transmission Date: 20120825
  Serious: No
  Sender: FDA-Public Use
  Company Number: US-ABBOTT-12P-163-0928297-00

PATIENT
  Sex: Male
  Weight: 104.42 kg

DRUGS (17)
  1. CEFUROXIME [Suspect]
     Indication: SINUSITIS
     Dates: start: 20120401
  2. ATORVASTATIN CALCIUM [Concomitant]
     Indication: BLOOD CHOLESTEROL INCREASED
  3. CYMBALTA [Concomitant]
     Indication: DEPRESSION
  4. NEXIUM [Concomitant]
     Indication: DYSPEPSIA
  5. TEMAZEPAM [Concomitant]
     Indication: SLEEP DISORDER THERAPY
  6. CIALIS [Concomitant]
     Indication: PRODUCT USED FOR UNKNOWN INDICATION
  7. TRIAMTERENE AND HYDROCHLOROTHIAZIDE [Concomitant]
     Indication: HYPERTENSION
  8. SUMATRIPTAN [Concomitant]
     Indication: MIGRAINE
  9. MULTI-VITAMINS [Concomitant]
     Indication: VITAMIN SUPPLEMENTATION
  10. RAMIPRIL [Concomitant]
     Indication: HYPERTENSION
  11. TOPIRAMATE [Concomitant]
     Indication: MIGRAINE
  12. CETIRIZINE [Concomitant]
     Indication: HYPERSENSITIVITY
  13. ASPIRIN [Concomitant]
     Indication: PRODUCT USED FOR UNKNOWN INDICATION
  14. ANDROGEL [Suspect]
     Indication: BLOOD TESTOSTERONE DECREASED
     Dosage: 1 PUMP TO EACH SHOULDER
     Route: 061
     Dates: start: 20110101
  15. POT CL MICRO [Concomitant]
     Indication: PRODUCT USED FOR UNKNOWN INDICATION
  16. NEXIUM [Concomitant]
  17. ACETAMINOPHEN AND HYDROCODONE BITARTRATE [Concomitant]
     Indication: HEADACHE

REACTIONS (5)
  - SINUSITIS [None]
  - DRUG ADMINISTRATION ERROR [None]
  - PRURITUS [None]
  - EXPIRED DRUG ADMINISTERED [None]
  - HEADACHE [None]
